FAERS Safety Report 10639073 (Version 8)
Quarter: 2015Q1

REPORT INFORMATION
  Report Type: Spontaneous
  Country: US (occurrence: US)
  Receive Date: 20141208
  Receipt Date: 20150330
  Transmission Date: 20150720
  Serious: No
  Sender: FDA-Public Use
  Company Number: US-009507513-0909USA00198

PATIENT
  Sex: Male

DRUGS (1)
  1. PROPECIA [Suspect]
     Active Substance: FINASTERIDE
     Indication: ANDROGENETIC ALOPECIA
     Dosage: 1 MG, QD
     Route: 048
     Dates: start: 200801, end: 20090816

REACTIONS (19)
  - Blood testosterone decreased [Unknown]
  - Dihydrotestosterone decreased [Unknown]
  - Weight increased [Unknown]
  - Depression [Not Recovered/Not Resolved]
  - Blood follicle stimulating hormone decreased [Unknown]
  - Empty sella syndrome [Unknown]
  - Asthenia [Unknown]
  - Blood luteinising hormone decreased [Unknown]
  - Anxiety [Not Recovered/Not Resolved]
  - Testicular disorder [Unknown]
  - Sexual dysfunction [Recovered/Resolved]
  - Erectile dysfunction [Unknown]
  - Secondary hypogonadism [Not Recovered/Not Resolved]
  - Libido decreased [Not Recovered/Not Resolved]
  - Cognitive disorder [Not Recovered/Not Resolved]
  - Vitamin D deficiency [Unknown]
  - Fatigue [Unknown]
  - Hypothalamo-pituitary disorder [Unknown]
  - Sexual dysfunction [Not Recovered/Not Resolved]

NARRATIVE: CASE EVENT DATE: 20090730
